FAERS Safety Report 16387294 (Version 1)
Quarter: 2019Q2

REPORT INFORMATION
  Report Type: Spontaneous
  Country: FR (occurrence: FR)
  Receive Date: 20190604
  Receipt Date: 20190604
  Transmission Date: 20190711
  Serious: Yes (Hospitalization)
  Sender: FDA-Public Use
  Company Number: FR-TEVA-2019-FR-1057106

PATIENT
  Age: 72 Year
  Sex: Male
  Weight: 70 kg

DRUGS (15)
  1. PARACETAMOL ALMUS 500 MG, COMPRIM? [Concomitant]
     Dosage: IF NEEDED FOR PAIN
     Route: 048
  2. LASILIX SPECIAL 500 MG, COMPRIM? S?CABLE [Interacting]
     Active Substance: FUROSEMIDE
     Indication: CARDIOMYOPATHY
     Route: 048
     Dates: start: 20180710, end: 20181108
  3. SERETIDE [Concomitant]
     Active Substance: FLUTICASONE PROPIONATE\SALMETEROL XINAFOATE
     Route: 055
  4. CORDARONE [Concomitant]
     Active Substance: AMIODARONE HYDROCHLORIDE
     Route: 048
  5. FOSINOPRIL [Suspect]
     Active Substance: FOSINOPRIL
     Indication: HYPERTENSION
     Route: 048
     Dates: end: 201810
  6. UN-ALFA 0,5 MICROGRAMMES, CAPSULE MOLLE [Concomitant]
     Route: 048
  7. TERBUTALINE ARROW [Concomitant]
     Active Substance: TERBUTALINE
     Route: 055
  8. LASILIX 40 MG, COMPRIM? S?CABLE [Interacting]
     Active Substance: FUROSEMIDE
     Indication: CARDIAC DISORDER
     Route: 048
     Dates: start: 20180711, end: 201810
  9. KARDEGIC [Concomitant]
     Active Substance: ASPIRIN DL-LYSINE
     Route: 048
  10. SPIRIVA [Concomitant]
     Active Substance: TIOTROPIUM BROMIDE MONOHYDRATE
     Route: 055
  11. INEXIUM 40 MG, COMPRIM? GASTRO-R?SISTANT [Concomitant]
     Active Substance: ESOMEPRAZOLE
     Route: 048
  12. CITALOPRAM ALMUS 20 MG, COMPRIM? PELLICUL? S?CABLE [Concomitant]
     Route: 048
  13. IPRATROPIUM AGUETTANT [Concomitant]
     Route: 055
  14. LERCANIDIPINE ARROW 10 MG, COMPRIM? PELLICUL? S?CABLE [Concomitant]
     Route: 048
     Dates: start: 20180711
  15. ALDACTONE [Interacting]
     Active Substance: SPIRONOLACTONE
     Indication: HYPERTENSION
     Route: 048
     Dates: start: 20180710, end: 201810

REACTIONS (3)
  - Acute kidney injury [Recovered/Resolved]
  - Hyperkalaemia [Recovered/Resolved]
  - Drug interaction [Unknown]

NARRATIVE: CASE EVENT DATE: 201809
